FAERS Safety Report 17247320 (Version 1)
Quarter: 2020Q1

REPORT INFORMATION
  Report Type: Spontaneous
  Country: GB (occurrence: GB)
  Receive Date: 20200108
  Receipt Date: 20200108
  Transmission Date: 20200409
  Serious: Yes (Life-Threatening, Hospitalization, Other)
  Sender: FDA-Public Use
  Company Number: GB-PFIZER INC-2020006640

PATIENT
  Age: 79 Year
  Sex: Female

DRUGS (6)
  1. RAMIPRIL. [Suspect]
     Active Substance: RAMIPRIL
     Indication: CARDIAC FAILURE
     Dosage: 2.5 MG, 1X/DAY
     Route: 048
     Dates: end: 20190531
  2. ATORVASTATIN [Concomitant]
     Active Substance: ATORVASTATIN
     Dosage: 40 MG, HS
     Route: 065
  3. FUROSEMIDE. [Suspect]
     Active Substance: FUROSEMIDE
     Indication: CARDIAC FAILURE
     Dosage: 40 MG, QD
     Route: 048
  4. SPIRONOLACTONE. [Suspect]
     Active Substance: SPIRONOLACTONE
     Indication: CARDIAC FAILURE
     Dosage: 25 MG, 1X/DAY
     Route: 048
     Dates: end: 20190531
  5. BISOPROLOL FUMARATE. [Suspect]
     Active Substance: BISOPROLOL FUMARATE
     Dosage: 2.5 MG, 1X/DAY
     Route: 048
  6. ADCAL D3 [Concomitant]
     Active Substance: CALCIUM CARBONATE\CHOLECALCIFEROL
     Dosage: 2 DF, QD

REACTIONS (4)
  - Bradycardia [Recovered/Resolved]
  - Hypotension [Recovered/Resolved]
  - Drug monitoring procedure not performed [Unknown]
  - Acute kidney injury [Recovered/Resolved]

NARRATIVE: CASE EVENT DATE: 20190531
